FAERS Safety Report 25484093 (Version 3)
Quarter: 2025Q3

REPORT INFORMATION
  Report Type: Spontaneous
  Country: EU (occurrence: EU)
  Receive Date: 20250626
  Receipt Date: 20250828
  Transmission Date: 20251020
  Serious: Yes (Other)
  Sender: MERCK SHARP & DOHME LLC
  Company Number: EU-009507513-2298848

PATIENT
  Age: 28 Year

DRUGS (4)
  1. WINREVAIR [Suspect]
     Active Substance: SOTATERCEPT-CSRK
     Indication: Pulmonary arterial hypertension
     Dates: start: 20250417
  2. WINREVAIR [Suspect]
     Active Substance: SOTATERCEPT-CSRK
  3. WINREVAIR [Suspect]
     Active Substance: SOTATERCEPT-CSRK
  4. WINREVAIR [Suspect]
     Active Substance: SOTATERCEPT-CSRK

REACTIONS (2)
  - Haemoptysis [Unknown]
  - Epistaxis [Unknown]

NARRATIVE: CASE EVENT DATE: 20250401
